FAERS Safety Report 15658205 (Version 1)
Quarter: 2018Q4

REPORT INFORMATION
  Report Type: Spontaneous
  Country: JP (occurrence: JP)
  Receive Date: 20181126
  Receipt Date: 20181126
  Transmission Date: 20190205
  Serious: Yes (Death)
  Sender: FDA-Public Use
  Company Number: JP-ELI_LILLY_AND_COMPANY-JP201811010980

PATIENT
  Age: 86 Year
  Sex: Female
  Weight: 34 kg

DRUGS (1)
  1. ERBITUX [Suspect]
     Active Substance: CETUXIMAB
     Indication: SQUAMOUS CELL CARCINOMA OF THE ORAL CAVITY
     Dosage: UNK UNK, UNKNOWN
     Route: 041

REACTIONS (2)
  - Pneumonia [Fatal]
  - Metastases to lung [Fatal]
